FAERS Safety Report 19704344 (Version 2)
Quarter: 2021Q4

REPORT INFORMATION
  Report Type: Report from Study
  Country: US (occurrence: US)
  Receive Date: 20210816
  Receipt Date: 20211024
  Transmission Date: 20220304
  Serious: No
  Sender: FDA-Public Use
  Company Number: US-BIOVITRUM-2021US6703

PATIENT
  Age: 15 Year
  Sex: Male

DRUGS (8)
  1. KINERET [Suspect]
     Active Substance: ANAKINRA
     Indication: Crohn^s disease
     Route: 058
     Dates: start: 20210630
  2. KINERET [Suspect]
     Active Substance: ANAKINRA
     Indication: Intestinal obstruction
  3. ASPIRIN [Concomitant]
     Active Substance: ASPIRIN
  4. URSODIOL [Concomitant]
     Active Substance: URSODIOL
  5. VITAMIN D [Concomitant]
     Active Substance: VITAMIN D NOS
  6. COVID-19 VACCINE NOS [Suspect]
     Active Substance: COVID-19 VACCINE NOS
  7. FLAGYL [Concomitant]
     Active Substance: METRONIDAZOLE\METRONIDAZOLE HYDROCHLORIDE
  8. VANCOMYCIN [Concomitant]
     Active Substance: VANCOMYCIN

REACTIONS (7)
  - Gait disturbance [Unknown]
  - Pain in extremity [Unknown]
  - Illness [Unknown]
  - Viral infection [Unknown]
  - Feeding intolerance [Recovering/Resolving]
  - Rash [Unknown]
  - Off label use [Not Recovered/Not Resolved]

NARRATIVE: CASE EVENT DATE: 20210630
